FAERS Safety Report 8186909-4 (Version None)
Quarter: 2012Q1

REPORT INFORMATION
  Report Type: 
  Country: None (occurrence: None)
  Receive Date: 20120306
  Receipt Date: 20120302
  Transmission Date: 20120608
  Serious: Yes (Death, Other)
  Sender: FDA-Public Use
  Company Number: CO-PFIZER INC-2012058473

PATIENT
  Sex: Male

DRUGS (4)
  1. GLIBENCLAMIDE [Concomitant]
     Dosage: 5 MG, 1X/DAY
     Route: 048
  2. LIPITOR [Suspect]
     Dosage: 20MG, DAILY
     Dates: start: 20070103
  3. NORVASC [Suspect]
     Dosage: 5MG, DAILY
     Route: 048
     Dates: start: 20070103
  4. CAPTOPRIL [Concomitant]
     Dosage: 25 MG, 1X/DAY
     Route: 048

REACTIONS (1)
  - DEATH [None]
